FAERS Safety Report 5669810-7 (Version None)
Quarter: 2008Q1

REPORT INFORMATION
  Report Type: 
  Country: None (occurrence: None)
  Receive Date: 20080317
  Receipt Date: 20080306
  Transmission Date: 20080703
  Serious: Yes (Other)
  Sender: FDA-Public Use
  Company Number: FR-PFIZER INC-2007098027

PATIENT
  Sex: Male
  Weight: 89 kg

DRUGS (3)
  1. TAHOR [Suspect]
     Indication: HYPERCHOLESTEROLAEMIA
     Route: 048
  2. LIPANTHYL [Concomitant]
  3. ENALAPRIL MALEATE [Concomitant]
     Route: 048

REACTIONS (1)
  - VERTIGO [None]
